FAERS Safety Report 6541002-9 (Version None)
Quarter: 2010Q1

REPORT INFORMATION
  Report Type: 
  Country: None (occurrence: None)
  Receive Date: 20100118
  Receipt Date: 20100115
  Transmission Date: 20100710
  Serious: Yes (Death, Hospitalization, Other)
  Sender: FDA-Public Use
  Company Number: PHHY2009BR49466

PATIENT
  Sex: Female

DRUGS (3)
  1. DIOVAN [Suspect]
     Indication: HYPERTENSION
     Dosage: 320 MG DAILY
     Route: 048
  2. ATENOL [Concomitant]
     Indication: HYPERTENSION
     Dosage: 100 MG 2 TABLETS DAILY
     Route: 048
  3. LIPITOR [Concomitant]
     Indication: BLOOD CHOLESTEROL ABNORMAL
     Dosage: 80 MG HALF A TABLET DAILY

REACTIONS (9)
  - APHASIA [None]
  - CATHETER PLACEMENT [None]
  - CEREBRAL ISCHAEMIA [None]
  - DIZZINESS [None]
  - DYSPNOEA [None]
  - HYPOKINESIA [None]
  - INFECTION [None]
  - PNEUMONIA [None]
  - SEPTIC SHOCK [None]
